FAERS Safety Report 6689374-9 (Version None)
Quarter: 2010Q2

REPORT INFORMATION
  Report Type: 
  Country: None (occurrence: None)
  Receive Date: 20100419
  Receipt Date: 20100419
  Transmission Date: 20101027
  Serious: Yes (Life-Threatening, Hospitalization)
  Sender: FDA-Public Use
  Company Number: None

PATIENT
  Age: 28 Year
  Sex: Female
  Weight: 85.2762 kg

DRUGS (1)
  1. AVELOX [Suspect]

REACTIONS (2)
  - ARTHRALGIA [None]
  - CHEST PAIN [None]
